FAERS Safety Report 5472107-1 (Version None)
Quarter: 2007Q3

REPORT INFORMATION
  Report Type: 
  Country: None (occurrence: None)
  Receive Date: 20070925
  Receipt Date: 20070910
  Transmission Date: 20080115
  Serious: Yes (Hospitalization)
  Sender: FDA-Public Use
  Company Number: PAR_01724_2007

PATIENT
  Sex: Female

DRUGS (1)
  1. MEGACE ES [Suspect]
     Indication: WEIGHT DECREASED
     Dosage: 20 ML QD ORAL
     Route: 048

REACTIONS (2)
  - HYPOTENSION [None]
  - INCORRECT DOSE ADMINISTERED [None]
